FAERS Safety Report 5226505-1 (Version None)
Quarter: 2007Q1

REPORT INFORMATION
  Report Type: 
  Country: None (occurrence: None)
  Receive Date: 20061210
  Receipt Date: 20061018
  Transmission Date: 20070707
  Serious: No
  Sender: FDA-Public Use
  Company Number: US200610003615

PATIENT
  Age: 32 Year
  Sex: Female

DRUGS (2)
  1. CYMBALTA [Suspect]
     Dosage: SEE IMAGE
     Route: 065
     Dates: start: 20050805
  2. RITALIN [Concomitant]

REACTIONS (2)
  - PREGNANCY TEST FALSE POSITIVE [None]
  - WEIGHT INCREASED [None]
